FAERS Safety Report 4946618-9 (Version None)
Quarter: 2006Q1

REPORT INFORMATION
  Report Type: 
  Country: None (occurrence: None)
  Receive Date: 20060317
  Receipt Date: 20060313
  Transmission Date: 20060701
  Serious: Yes (Hospitalization)
  Sender: FDA-Public Use
  Company Number: DE-GLAXOSMITHKLINE-D0048998A

PATIENT
  Sex: Male

DRUGS (1)
  1. AVANDAMET [Suspect]
     Dosage: 1002MG UNKNOWN
     Route: 048
     Dates: start: 20060101

REACTIONS (3)
  - ARRHYTHMIA [None]
  - ATRIOVENTRICULAR BLOCK COMPLETE [None]
  - SYNCOPE [None]
